FAERS Safety Report 6925512-8 (Version None)
Quarter: 2010Q3

REPORT INFORMATION
  Report Type: 
  Country: None (occurrence: None)
  Receive Date: 20100816
  Receipt Date: 20100806
  Transmission Date: 20110219
  Serious: No
  Sender: FDA-Public Use
  Company Number: US-JNJFOC-20100803607

PATIENT
  Sex: Male
  Weight: 115.67 kg

DRUGS (8)
  1. FENTANYL [Suspect]
     Indication: BACK PAIN
     Route: 062
  2. LIPITOR [Concomitant]
     Indication: BLOOD CHOLESTEROL INCREASED
     Route: 048
  3. PLAVIX [Concomitant]
     Indication: CARDIAC DISORDER
     Route: 048
  4. ENALAPRIL [Concomitant]
     Route: 048
  5. AMITRIPTYLINE HYDROCHLORIDE [Concomitant]
     Route: 048
  6. UNKNOWN MEDICATION [Concomitant]
     Route: 048
  7. METOPROLOL [Concomitant]
     Indication: HYPERTENSION
     Route: 048
  8. RANITIDINE [Concomitant]
     Indication: GASTRIC DISORDER
     Route: 048

REACTIONS (4)
  - CONFUSIONAL STATE [None]
  - INCORRECT DRUG ADMINISTRATION DURATION [None]
  - SOMNOLENCE [None]
  - WRONG TECHNIQUE IN DRUG USAGE PROCESS [None]
